FAERS Safety Report 10697726 (Version 3)
Quarter: 2015Q2

REPORT INFORMATION
  Report Type: Spontaneous
  Country: GB (occurrence: IE)
  Receive Date: 20150108
  Receipt Date: 20150518
  Transmission Date: 20150821
  Serious: Yes (Death, Other)
  Sender: FDA-Public Use
  Company Number: GB-009507513-1501GBR001262

PATIENT

DRUGS (1)
  1. NEXPLANON [Suspect]
     Active Substance: ETONOGESTREL
     Dosage: UNK
     Route: 064
     Dates: start: 20140212, end: 20141112

REACTIONS (3)
  - Premature baby [Fatal]
  - Foetal exposure during pregnancy [Recovered/Resolved]
  - Death neonatal [Fatal]

NARRATIVE: CASE EVENT DATE: 2014
